FAERS Safety Report 24905078 (Version 4)
Quarter: 2025Q2

REPORT INFORMATION
  Report Type: Spontaneous
  Country: US (occurrence: US)
  Receive Date: 20250130
  Receipt Date: 20250609
  Transmission Date: 20250717
  Serious: Yes (Life-Threatening, Hospitalization, Other)
  Sender: SANOFI AVENTIS
  Company Number: US-SA-2025SA027899

PATIENT
  Age: 43 Year
  Sex: Female

DRUGS (2)
  1. DUPIXENT [Suspect]
     Active Substance: DUPILUMAB
     Indication: Asthma
     Dosage: 300 MG, QOW
     Route: 058
     Dates: start: 20241028
  2. CLINDAMYCIN HYDROCHLORIDE [Concomitant]
     Active Substance: CLINDAMYCIN HYDROCHLORIDE
     Indication: Antibiotic prophylaxis

REACTIONS (11)
  - Colitis [Unknown]
  - Limb injury [Unknown]
  - Mobility decreased [Unknown]
  - Haemangioma [Unknown]
  - Pain [Unknown]
  - Heart rate increased [Unknown]
  - Psoriasis [Unknown]
  - Palpitations [Unknown]
  - Pneumonitis [Unknown]
  - Clostridium difficile infection [Unknown]
  - Infection [Recovered/Resolved]

NARRATIVE: CASE EVENT DATE: 20241201
